FAERS Safety Report 8270922-2 (Version None)
Quarter: 2012Q2

REPORT INFORMATION
  Report Type: 
  Country: None (occurrence: None)
  Receive Date: 20120410
  Receipt Date: 20120403
  Transmission Date: 20120825
  Serious: Yes (Other)
  Sender: FDA-Public Use
  Company Number: JP-PFIZER INC-2012084552

PATIENT

DRUGS (2)
  1. METHOTREXATE SODIUM [Suspect]
     Indication: CENTRAL NERVOUS SYSTEM LYMPHOMA
     Dosage: 3 G, UNK
     Route: 041
     Dates: start: 20120328
  2. LEUCOVORIN CALCIUM [Concomitant]
     Indication: CENTRAL NERVOUS SYSTEM LYMPHOMA
     Dosage: UNK
     Route: 041

REACTIONS (3)
  - TUMOUR LYSIS SYNDROME [None]
  - DISORIENTATION [None]
  - DRUG LEVEL INCREASED [None]
